FAERS Safety Report 14126204 (Version 4)
Quarter: 2017Q4

REPORT INFORMATION
  Report Type: Spontaneous
  Country: BR (occurrence: BR)
  Receive Date: 20171025
  Receipt Date: 20171110
  Transmission Date: 20180321
  Serious: Yes (Life-Threatening, Other)
  Sender: FDA-Public Use
  Company Number: BR-009507513-1710BRA011667

PATIENT
  Age: 78 Year
  Sex: Female
  Weight: 72 kg

DRUGS (3)
  1. DIAMICRON [Concomitant]
     Active Substance: GLICLAZIDE
     Indication: DIABETES MELLITUS
     Dosage: 1 TABLET (60 MG) PER DAY
     Route: 048
  2. JANUVIA [Suspect]
     Active Substance: SITAGLIPTIN PHOSPHATE
     Indication: DIABETES MELLITUS
     Dosage: 1 TABLET (100 MG), PER DAY
     Route: 048
     Dates: start: 2015
  3. JANUVIA [Suspect]
     Active Substance: SITAGLIPTIN PHOSPHATE
     Dosage: 1 TABLET (100 MG), PER DAY
     Route: 048
     Dates: start: 20171017

REACTIONS (11)
  - Counterfeit drug administered [Unknown]
  - Dizziness [Recovered/Resolved]
  - Nervousness [Unknown]
  - Product counterfeit [Unknown]
  - Suspected counterfeit product [Unknown]
  - Head discomfort [Recovered/Resolved]
  - Thyroid disorder [Unknown]
  - Gastritis [Unknown]
  - Diabetes mellitus [Recovered/Resolved]
  - Blood pressure increased [Recovered/Resolved]
  - Blood cholesterol abnormal [Unknown]

NARRATIVE: CASE EVENT DATE: 201710
